FAERS Safety Report 4933604-8 (Version None)
Quarter: 2006Q1

REPORT INFORMATION
  Report Type: 
  Country: None (occurrence: None)
  Receive Date: 20060306
  Receipt Date: 20060127
  Transmission Date: 20060701
  Serious: Yes (Life-Threatening, Hospitalization)
  Sender: FDA-Public Use
  Company Number: NLWYE340827JAN06

PATIENT
  Sex: Female

DRUGS (4)
  1. ENBREL [Suspect]
     Indication: RHEUMATOID ARTHRITIS
     Dates: start: 20050101, end: 20060130
  2. ENBREL [Suspect]
     Indication: PSORIATIC ARTHROPATHY
  3. MOVICOX [Concomitant]
     Dosage: UNKNOWN
  4. METHOTREXATE [Concomitant]
     Dates: end: 20060101

REACTIONS (6)
  - BLOOD PRESSURE ABNORMAL [None]
  - IMPAIRED HEALING [None]
  - LUNG DISORDER [None]
  - PYREXIA [None]
  - RENAL DISORDER [None]
  - STREPTOCOCCAL INFECTION [None]
